FAERS Safety Report 4598187-3 (Version None)
Quarter: 2005Q1

REPORT INFORMATION
  Report Type: 
  Country: None (occurrence: None)
  Receive Date: 20050302
  Receipt Date: 20050215
  Transmission Date: 20050727
  Serious: Yes (Hospitalization, Disabling)
  Sender: FDA-Public Use
  Company Number: 2005GB00325

PATIENT
  Sex: Female
  Weight: 60 kg

DRUGS (5)
  1. QUETIAPINE FUMARATE [Suspect]
     Indication: BIPOLAR DISORDER
     Dosage: 150 MG PO
     Route: 048
     Dates: start: 20050116, end: 20050201
  2. RISPERIDONE [Suspect]
     Indication: BIPOLAR DISORDER
     Dosage: 1 MG PO
     Route: 048
     Dates: end: 20050116
  3. LITHIUM [Concomitant]
  4. CIPRAMIL [Concomitant]
  5. ZOPICLONE [Concomitant]

REACTIONS (2)
  - DRUG WITHDRAWAL SYNDROME [None]
  - TREMOR [None]
